FAERS Safety Report 20209521 (Version 1)
Quarter: 2021Q4

REPORT INFORMATION
  Report Type: Spontaneous
  Country: US (occurrence: US)
  Receive Date: 20211221
  Receipt Date: 20211221
  Transmission Date: 20220303
  Serious: No
  Sender: FDA-Public Use
  Company Number: US-ELI_LILLY_AND_COMPANY-US202111009849

PATIENT
  Sex: Female

DRUGS (1)
  1. TRULICITY [Suspect]
     Active Substance: DULAGLUTIDE
     Indication: Type 2 diabetes mellitus
     Dosage: 0.75 MG, UNKNOWN
     Route: 065
     Dates: start: 202110

REACTIONS (10)
  - Burning sensation [Recovered/Resolved]
  - Pain [Unknown]
  - Muscle spasms [Unknown]
  - Feeding disorder [Unknown]
  - Weight decreased [Unknown]
  - Injection site pain [Unknown]
  - Injection site mass [Unknown]
  - Injection site bruising [Recovered/Resolved]
  - Injection site haemorrhage [Unknown]
  - Nausea [Unknown]
